FAERS Safety Report 14187029 (Version 3)
Quarter: 2017Q4

REPORT INFORMATION
  Report Type: Spontaneous
  Country: FR (occurrence: FR)
  Receive Date: 20171114
  Receipt Date: 20171127
  Transmission Date: 20180321
  Serious: Yes (Hospitalization)
  Sender: FDA-Public Use
  Company Number: FR-PFIZER INC-2017482880

PATIENT
  Age: 80 Year
  Sex: Male

DRUGS (20)
  1. CIPROFLOXACIN. [Suspect]
     Active Substance: CIPROFLOXACIN
     Indication: INFECTION
     Dosage: UNK
     Route: 048
     Dates: start: 20171001, end: 20171005
  2. PARACETAMOL [Concomitant]
     Active Substance: ACETAMINOPHEN
     Dosage: 1 G, 4X/DAY
     Route: 042
  3. RIFINAH [Suspect]
     Active Substance: ISONIAZID\RIFAMPIN
     Indication: TUBERCULOSIS
     Dosage: 2 DF, 1X/DAY
     Route: 048
     Dates: start: 20171006, end: 20171024
  4. MYAMBUTOL [Suspect]
     Active Substance: ETHAMBUTOL HYDROCHLORIDE
     Indication: TUBERCULOSIS
     Dosage: 800 MG, 1X/DAY
     Route: 048
     Dates: start: 20171006, end: 20171024
  5. DARBEPOETIN ALFA [Concomitant]
     Active Substance: DARBEPOETIN ALFA
     Dosage: 150 UG, WEEKLY (EVERY TUESDAY)
  6. BICARBONATE [Concomitant]
     Active Substance: BICARBONATE ION
     Dosage: UNK UNK, 3X/DAY
  7. TRIFLUCAN [Suspect]
     Active Substance: FLUCONAZOLE
     Indication: ORAL CANDIDIASIS
     Dosage: UNK
     Route: 048
     Dates: start: 20171011, end: 20171020
  8. VANCOMYCINE SANDOZ [Suspect]
     Active Substance: VANCOMYCIN
     Indication: INFECTION
     Dosage: UNK
     Route: 042
     Dates: start: 20171001, end: 20171005
  9. ATORVASTATIN [Concomitant]
     Active Substance: ATORVASTATIN
     Dosage: 10 MG, 3 DAYS PER WEEK (MONDAY-WEDNESDAY-FRIDAY)
  10. MIANSERIN [Concomitant]
     Active Substance: MIANSERIN
     Dosage: 30 MG, 1X/DAY (IN THE EVENING)
  11. TRIFLUCAN [Suspect]
     Active Substance: FLUCONAZOLE
     Indication: OESOPHAGEAL CANDIDIASIS
  12. PANTOPRAZOLE [Suspect]
     Active Substance: PANTOPRAZOLE
     Indication: TUBERCULOSIS
     Dosage: 1 DF, 1X/DAY
     Route: 048
     Dates: start: 20171004, end: 20171022
  13. PIPERACILLINE / TAZOBACTAM MYLAN [Suspect]
     Active Substance: PIPERACILLIN SODIUM\TAZOBACTAM SODIUM
     Indication: INFECTION
     Dosage: UNK
     Route: 042
     Dates: start: 20171001, end: 20171005
  14. AUGMENTIN [Suspect]
     Active Substance: AMOXICILLIN\CLAVULANATE POTASSIUM
     Indication: INFECTION
     Dosage: UNK
     Route: 048
     Dates: start: 20170929, end: 20171001
  15. BISOPROLOL [Concomitant]
     Active Substance: BISOPROLOL
     Dosage: 2.5 MG, 1X/DAY (IN THE MORNING)
  16. LANSOPRAZOLE. [Concomitant]
     Active Substance: LANSOPRAZOLE
     Dosage: 15 MG, 1X/DAY (IN THE MORNING)
  17. ZOPICLONE [Concomitant]
     Active Substance: ZOPICLONE
     Dosage: 7.5 MG, 1X/DAY (EVENING)
  18. EZETROL [Concomitant]
     Active Substance: EZETIMIBE
     Dosage: 10 MG, 1X/DAY (IN THE EVENING)
  19. OXAZEPAM. [Concomitant]
     Active Substance: OXAZEPAM
     Dosage: 10 MG, 1X/DAY (IN THE EVENING)
  20. LOVENOX [Concomitant]
     Active Substance: ENOXAPARIN SODIUM
     Dosage: 4000 IU, DAILY

REACTIONS (3)
  - Purpura [Recovering/Resolving]
  - Petechiae [Recovering/Resolving]
  - Dermatitis exfoliative [Recovering/Resolving]

NARRATIVE: CASE EVENT DATE: 20171013
